FAERS Safety Report 5781690-8 (Version None)
Quarter: 2008Q2

REPORT INFORMATION
  Report Type: 
  Country: None (occurrence: None)
  Receive Date: 20080619
  Receipt Date: 20080611
  Transmission Date: 20081010
  Serious: Yes (Other)
  Sender: FDA-Public Use
  Company Number: 2008SP011714

PATIENT
  Age: 85 Year
  Sex: Female

DRUGS (8)
  1. CLARITIN [Suspect]
     Indication: HEADACHE
     Dosage: 10 MG; ONCE
     Dates: start: 20080610
  2. CLARITIN [Suspect]
     Indication: NASAL CONGESTION
     Dosage: 10 MG; ONCE
     Dates: start: 20080610
  3. LANTUS [Concomitant]
  4. AVAPRO [Concomitant]
  5. LEVOTHROXIA [Concomitant]
  6. EPOGEN [Concomitant]
  7. FENTANYE [Concomitant]
  8. PREVACID [Concomitant]

REACTIONS (1)
  - LOSS OF CONSCIOUSNESS [None]
